FAERS Safety Report 24364400 (Version 1)
Quarter: 2024Q3

REPORT INFORMATION
  Report Type: Report from Study
  Country: US (occurrence: US)
  Receive Date: 20240926
  Receipt Date: 20240926
  Transmission Date: 20241017
  Serious: Yes (Other)
  Sender: INSMED
  Company Number: US-INSMED, INC.-2024-03633-US

PATIENT
  Age: 75 Year
  Sex: Male

DRUGS (1)
  1. ARIKAYCE [Suspect]
     Active Substance: AMIKACIN
     Indication: Product used for unknown indication
     Dosage: UNK, UNK
     Route: 055
     Dates: start: 20240907

REACTIONS (6)
  - Condition aggravated [Unknown]
  - Pulmonary congestion [Unknown]
  - Increased viscosity of bronchial secretion [Unknown]
  - Respiratory tract congestion [Unknown]
  - Sputum retention [Unknown]
  - Dyspnoea [Unknown]

NARRATIVE: CASE EVENT DATE: 20240901
